FAERS Safety Report 8218800-9 (Version None)
Quarter: 2012Q1

REPORT INFORMATION
  Report Type: 
  Country: None (occurrence: None)
  Receive Date: 20120319
  Receipt Date: 20120314
  Transmission Date: 20120608
  Serious: Yes (Death, Hospitalization)
  Sender: FDA-Public Use
  Company Number: PHHO2012KR003413

PATIENT
  Sex: Female
  Weight: 50 kg

DRUGS (6)
  1. OXYCONTIN [Concomitant]
     Indication: CANCER PAIN
     Dosage: 20 MG, BID
     Route: 048
     Dates: start: 20111115
  2. JANUMET [Concomitant]
     Indication: DIABETES MELLITUS
     Dosage: 1 DF, BID
     Dates: start: 20111010
  3. CRESTOR [Concomitant]
     Indication: DYSLIPIDAEMIA
     Dosage: 10 MG, QD
     Route: 048
  4. LANTUS [Concomitant]
     Indication: DIABETES MELLITUS
     Dosage: QD
     Route: 058
     Dates: start: 20120104
  5. AFINITOR [Suspect]
     Indication: NEUROENDOCRINE TUMOUR
     Dosage: 10 MG, QD
     Route: 048
     Dates: start: 20111215, end: 20120225
  6. BARACLUDE [Concomitant]
     Indication: VIRAL HEPATITIS CARRIER
     Dosage: 0.5 MG, QD
     Route: 048
     Dates: start: 20111017

REACTIONS (5)
  - ACUTE RESPIRATORY DISTRESS SYNDROME [None]
  - URINARY TRACT INFECTION [None]
  - PULMONARY OEDEMA [None]
  - RENAL FAILURE ACUTE [None]
  - PYELONEPHRITIS ACUTE [None]
